FAERS Safety Report 5523327-9 (Version None)
Quarter: 2007Q4

REPORT INFORMATION
  Report Type: 
  Country: None (occurrence: None)
  Receive Date: 20071121
  Receipt Date: 20071115
  Transmission Date: 20080405
  Serious: Yes (Death, Hospitalization)
  Sender: FDA-Public Use
  Company Number: A0694781A

PATIENT
  Age: 38 Year
  Sex: Male

DRUGS (2)
  1. AVANDIA [Suspect]
     Route: 048
     Dates: start: 20000101
  2. GLUCOTROL [Concomitant]

REACTIONS (6)
  - CHEST PAIN [None]
  - COMA [None]
  - DYSPNOEA [None]
  - HYPERTENSION [None]
  - OEDEMA [None]
  - ORGAN FAILURE [None]
